FAERS Safety Report 9597246 (Version 1)
Quarter: 2013Q4

REPORT INFORMATION
  Report Type: Spontaneous
  Country: US (occurrence: US)
  Receive Date: 20131004
  Receipt Date: 20131004
  Transmission Date: 20140711
  Serious: No
  Sender: FDA-Public Use
  Company Number: US-AMGEN-USASP2013018240

PATIENT
  Age: 67 Year
  Sex: Female

DRUGS (9)
  1. ENBREL [Suspect]
     Indication: PRODUCT USED FOR UNKNOWN INDICATION
     Dosage: 50 MG, QWK
     Route: 058
  2. VITAMIN D                          /00107901/ [Concomitant]
     Dosage: 50000 UNIT, UNK
  3. CRESTOR [Concomitant]
     Dosage: 10 MG, UNK
  4. DOLOBID [Concomitant]
     Dosage: 250 MG, UNK
  5. LISINOPRIL [Concomitant]
     Dosage: 2.5 MG, UNK
  6. VITAMIN B12                        /00056201/ [Concomitant]
     Dosage: 1000 UNK, UNK
  7. CALTRATE                           /00944201/ [Concomitant]
     Dosage: 600
  8. CLARITIN                           /00413701/ [Concomitant]
     Dosage: 10 MG, UNK
  9. METFORMIN [Concomitant]
     Dosage: 1000 MG, UNK

REACTIONS (2)
  - Injection site erythema [Unknown]
  - Injection site warmth [Unknown]
